FAERS Safety Report 14862080 (Version 1)
Quarter: 2018Q2

REPORT INFORMATION
  Report Type: Spontaneous
  Country: US (occurrence: US)
  Receive Date: 20180508
  Receipt Date: 20180508
  Transmission Date: 20180711
  Serious: Yes (Hospitalization)
  Sender: FDA-Public Use
  Company Number: US-HLSUS-2018-US-000315

PATIENT
  Sex: Male

DRUGS (1)
  1. CLOZARIL [Suspect]
     Active Substance: CLOZAPINE

REACTIONS (5)
  - Mania [Unknown]
  - Treatment noncompliance [Unknown]
  - Weight increased [Unknown]
  - Sedation [Unknown]
  - Agitation [Unknown]
